FAERS Safety Report 7760036-X (Version None)
Quarter: 2011Q3

REPORT INFORMATION
  Report Type: 
  Country: None (occurrence: None)
  Receive Date: 20110919
  Receipt Date: 20110906
  Transmission Date: 20111222
  Serious: Yes (Hospitalization)
  Sender: FDA-Public Use
  Company Number: US-BAYER-2011-013543

PATIENT
  Age: 33 Year
  Sex: Female
  Weight: 125.17 kg

DRUGS (10)
  1. ZOLOFT [Concomitant]
     Dosage: UNK UNK, QD
  2. SEROQUEL [Concomitant]
     Dosage: UNK UNK, HS
  3. MULTI-VITAMIN [Concomitant]
  4. YAZ [Suspect]
     Indication: MENORRHAGIA
  5. BETASERON [Concomitant]
     Indication: MULTIPLE SCLEROSIS
     Dosage: UNK UNK, QOD
  6. PROVIGIL [Concomitant]
     Indication: SLEEP APNOEA SYNDROME
     Dosage: UNK UNK, BID
  7. YAZ [Suspect]
     Indication: ACNE
     Dosage: UNK
     Dates: start: 20070101, end: 20090201
  8. YAZ [Suspect]
     Indication: PREMENSTRUAL SYNDROME
  9. YAZ [Suspect]
  10. KLONOPIN [Concomitant]
     Dosage: 1 MG, QD

REACTIONS (4)
  - CHEST PAIN [None]
  - PULMONARY EMBOLISM [None]
  - DYSPNOEA [None]
  - PAIN [None]
